FAERS Safety Report 4372622-8 (Version None)
Quarter: 2004Q2

REPORT INFORMATION
  Report Type: 
  Country: None (occurrence: None)
  Receive Date: 20040526
  Receipt Date: 20040514
  Transmission Date: 20050107
  Serious: No
  Sender: FDA-Public Use
  Company Number: 04P-056-0261105-00

PATIENT
  Age: 39 Year
  Sex: Female

DRUGS (3)
  1. VALPROATE SODIUM [Suspect]
     Indication: EPILEPSY
     Dosage: 500 MG, 2 IN 1 D
  2. LAMOTRIGINE [Suspect]
     Indication: EPILEPSY
     Dosage: 1 UNIT, 2 IN 1 D
  3. DIAZEPAM [Suspect]
     Indication: EPILEPSY
     Dosage: 2 MG, 1 IN 1 D

REACTIONS (4)
  - ABORTION INDUCED [None]
  - CONGENITAL ANOMALY [None]
  - DRUG EXPOSURE DURING PREGNANCY [None]
  - PREGNANCY [None]
